FAERS Safety Report 4642457-7 (Version None)
Quarter: 2005Q2

REPORT INFORMATION
  Report Type: 
  Country: None (occurrence: None)
  Receive Date: 20050422
  Receipt Date: 20050418
  Transmission Date: 20051028
  Serious: Yes (Hospitalization)
  Sender: FDA-Public Use
  Company Number: CH-ROCHE-402041

PATIENT
  Age: 70 Year
  Sex: Male

DRUGS (4)
  1. TORSEMIDE [Suspect]
     Route: 048
     Dates: start: 20050118
  2. MARCUMAR [Concomitant]
     Indication: SICK SINUS SYNDROME
     Route: 048
     Dates: start: 20050118
  3. ISOPTIN [Concomitant]
     Route: 048
     Dates: start: 20050118
  4. CONCOR [Concomitant]
     Route: 048
     Dates: start: 20050118

REACTIONS (1)
  - NEPHRITIS INTERSTITIAL [None]
